FAERS Safety Report 15022492 (Version 2)
Quarter: 2018Q3

REPORT INFORMATION
  Report Type: Spontaneous
  Country: CA (occurrence: CA)
  Receive Date: 20180618
  Receipt Date: 20180711
  Transmission Date: 20181010
  Serious: Yes (Other)
  Sender: FDA-Public Use
  Company Number: CA-PFIZER INC-2018239127

PATIENT
  Age: 54 Year
  Sex: Male

DRUGS (4)
  1. CORTEF [Suspect]
     Active Substance: HYDROCORTISONE
     Indication: INFLUENZA
  2. CORTEF [Suspect]
     Active Substance: HYDROCORTISONE
     Indication: MALAISE
  3. CORTEF [Suspect]
     Active Substance: HYDROCORTISONE
     Indication: NASOPHARYNGITIS
     Dosage: 20 MG, AS NEEDED (TWICE A DAY)
     Route: 048
  4. SYNTHROID [Suspect]
     Active Substance: LEVOTHYROXINE SODIUM
     Dosage: 0.112 MG, DAILY
     Route: 048

REACTIONS (4)
  - Pituitary tumour [Unknown]
  - Product use in unapproved indication [Unknown]
  - Growth hormone deficiency [Not Recovered/Not Resolved]
  - Fatigue [Not Recovered/Not Resolved]

NARRATIVE: CASE EVENT DATE: 2015
